FAERS Safety Report 10101533 (Version 1)
Quarter: 2014Q2

REPORT INFORMATION
  Report Type: Report from Study
  Country: CA (occurrence: CA)
  Receive Date: 20140424
  Receipt Date: 20140424
  Transmission Date: 20141212
  Serious: Yes (Other)
  Sender: FDA-Public Use
  Company Number: CA-JNJFOC-20140414407

PATIENT
  Age: 76 Year
  Sex: Male
  Weight: 104.78 kg

DRUGS (11)
  1. REMICADE [Suspect]
     Indication: RHEUMATOID ARTHRITIS
     Route: 042
     Dates: start: 20081209
  2. METHOTREXATE [Concomitant]
     Route: 058
  3. LIPITOR [Concomitant]
     Route: 065
  4. METFORMIN [Concomitant]
     Route: 065
  5. ACCURETIC [Concomitant]
     Route: 065
  6. AVODART [Concomitant]
     Route: 065
  7. TAMSULOSIN [Concomitant]
     Route: 065
  8. ASA [Concomitant]
     Route: 065
  9. FOLIC ACID [Concomitant]
     Route: 065
  10. VITAMIN D [Concomitant]
     Route: 065
  11. SALAZOPYRIN [Concomitant]
     Route: 048

REACTIONS (3)
  - Syncope [Recovering/Resolving]
  - Viral infection [Recovering/Resolving]
  - Dehydration [Recovering/Resolving]
